FAERS Safety Report 18590328 (Version 1)
Quarter: 2020Q4

REPORT INFORMATION
  Report Type: Other
  Country: US (occurrence: US)
  Receive Date: 20201208
  Receipt Date: 20201208
  Transmission Date: 20210114
  Serious: Yes (Hospitalization, Other)
  Sender: FDA-Public Use
  Company Number: US-ROCHE-2618849

PATIENT
  Age: 63 Year
  Sex: Female
  Weight: 65.83 kg

DRUGS (2)
  1. OCREVUS [Suspect]
     Active Substance: OCRELIZUMAB
     Indication: SECONDARY PROGRESSIVE MULTIPLE SCLEROSIS
     Route: 042
     Dates: start: 2019
  2. OCREVUS [Suspect]
     Active Substance: OCRELIZUMAB
     Indication: RELAPSING MULTIPLE SCLEROSIS
     Dosage: DATE OF TREATMENT: 11/JUN/2020, 20/DEC/2019, 27/SEP/2019, 09/MAY/2019, 25/APR/2019, 23/APR/2019
     Route: 065
     Dates: start: 20190425

REACTIONS (9)
  - Fluid retention [Recovering/Resolving]
  - Gait disturbance [Recovered/Resolved]
  - Urinary tract infection [Recovered/Resolved]
  - Lower limb fracture [Recovered/Resolved]
  - Fibula fracture [Recovered/Resolved]
  - Speech disorder [Recovered/Resolved]
  - Body temperature abnormal [Recovered/Resolved]
  - Gait disturbance [Not Recovered/Not Resolved]
  - Tibia fracture [Recovered/Resolved]

NARRATIVE: CASE EVENT DATE: 20190915
